FAERS Safety Report 8507841-X (Version None)
Quarter: 2012Q3

REPORT INFORMATION
  Report Type: 
  Country: None (occurrence: None)
  Receive Date: 20120713
  Receipt Date: 20120703
  Transmission Date: 20120928
  Serious: Yes (Other)
  Sender: FDA-Public Use
  Company Number: CA-JNJFOC-20120406748

PATIENT
  Sex: Female
  Weight: 78.6 kg

DRUGS (5)
  1. REMICADE [Suspect]
     Dosage: 30TH INFUSION
     Route: 042
     Dates: start: 20120703
  2. IMURAN [Concomitant]
     Indication: COLITIS ULCERATIVE
     Route: 048
  3. REMICADE [Suspect]
     Indication: COLITIS ULCERATIVE
     Route: 042
     Dates: start: 20070618
  4. MESALAMINE [Concomitant]
     Indication: COLITIS ULCERATIVE
     Dosage: 3 TABLETS 2 TIMES A DAY.
     Route: 048
  5. REMICADE [Suspect]
     Dosage: 29TH INFUSION
     Route: 042
     Dates: start: 20120416

REACTIONS (4)
  - ROAD TRAFFIC ACCIDENT [None]
  - LIVER DISORDER [None]
  - RENAL DISORDER [None]
  - SCIATICA [None]
